FAERS Safety Report 25953797 (Version 1)
Quarter: 2025Q4

REPORT INFORMATION
  Report Type: Spontaneous
  Country: US (occurrence: US)
  Receive Date: 20251023
  Receipt Date: 20251023
  Transmission Date: 20260117
  Serious: No
  Sender: Haleon PLC
  Company Number: US-HALEON-2269167

PATIENT
  Sex: Female

DRUGS (3)
  1. NICODERM CQ [Suspect]
     Active Substance: NICOTINE
     Indication: Myalgia
     Dosage: 1 PATCH
     Dates: start: 20251020
  2. NICODERM CQ [Suspect]
     Active Substance: NICOTINE
     Indication: Neuralgia
  3. NICODERM CQ [Suspect]
     Active Substance: NICOTINE
     Indication: Pain

REACTIONS (3)
  - Application site pruritus [Not Recovered/Not Resolved]
  - Dyspnoea [Not Recovered/Not Resolved]
  - Dizziness [Not Recovered/Not Resolved]

NARRATIVE: CASE EVENT DATE: 20251020
